FAERS Safety Report 8294922-1 (Version None)
Quarter: 2012Q2

REPORT INFORMATION
  Report Type: 
  Country: None (occurrence: None)
  Receive Date: 20120418
  Receipt Date: 20120412
  Transmission Date: 20120825
  Serious: Yes (Hospitalization)
  Sender: FDA-Public Use
  Company Number: ES-ABBOTT-12P-144-0925000-00

PATIENT
  Age: 99 Year
  Sex: Female

DRUGS (8)
  1. TERBUTALINA [Concomitant]
     Indication: PRODUCT USED FOR UNKNOWN INDICATION
     Route: 055
  2. DILTIAZEM HYDROCHLORIDE [Interacting]
     Indication: ATRIAL FIBRILLATION
     Dates: start: 20110101, end: 20120312
  3. OMEPRAZOLE [Concomitant]
     Indication: PRODUCT USED FOR UNKNOWN INDICATION
     Route: 048
  4. FLUMIL [Concomitant]
     Indication: RESPIRATORY TRACT INFECTION
     Route: 048
  5. FUROSEMIDE [Concomitant]
     Indication: PRODUCT USED FOR UNKNOWN INDICATION
     Dosage: 60 MG DAILY
     Route: 048
     Dates: start: 20120305
  6. DIGOXIN [Interacting]
     Indication: ATRIAL FIBRILLATION
     Route: 048
     Dates: start: 20110101, end: 20120312
  7. CLARITHROMYCIN [Suspect]
     Indication: RESPIRATORY TRACT INFECTION
     Route: 048
     Dates: start: 20120310, end: 20120312
  8. SINTROM [Concomitant]
     Indication: ATRIAL FIBRILLATION
     Route: 048

REACTIONS (3)
  - TOXICITY TO VARIOUS AGENTS [None]
  - RESPIRATORY FAILURE [None]
  - OEDEMA PERIPHERAL [None]
